FAERS Safety Report 9632128 (Version 1)
Quarter: 2013Q4

REPORT INFORMATION
  Report Type: Spontaneous
  Country: US (occurrence: None)
  Receive Date: 20131016
  Receipt Date: 20131016
  Transmission Date: 20140711
  Serious: Yes (Disabling)
  Sender: FDA-Public Use
  Company Number: 2013AP008665

PATIENT
  Age: 76 Year
  Sex: Female

DRUGS (8)
  1. ALENDRONATE (ALENDRONATE SODIUM) [Suspect]
     Indication: OSTEONECROSIS OF JAW
  2. AMISULPRID (AMISULPRID) [Concomitant]
  3. ASPIRIN (ACETYLSALICYLIC ACID) [Concomitant]
  4. ATORVASTATIN (ATORVASTATIN) [Concomitant]
  5. FUROSEMIDE (FUROSEMIDE) [Concomitant]
  6. LACTULOSE (LACTULOSE) [Concomitant]
  7. PARACETAMOL (PARACETAMOL) [Concomitant]
  8. TRAZODONE (TRAZODONE) [Concomitant]

REACTIONS (1)
  - Osteonecrosis of jaw [None]
